FAERS Safety Report 9586861 (Version 1)
Quarter: 2013Q4

REPORT INFORMATION
  Report Type: Spontaneous
  Country: BR (occurrence: BR)
  Receive Date: 20131003
  Receipt Date: 20131003
  Transmission Date: 20140711
  Serious: Yes (Life-Threatening, Hospitalization)
  Sender: FDA-Public Use
  Company Number: BR-COVIDIEN/TYCO HEALTHCARE/MALLINCKRODT-T201304494

PATIENT
  Age: 50 Year
  Sex: Female
  Weight: 62 kg

DRUGS (1)
  1. OPTIRAY [Suspect]
     Indication: COMPUTERISED TOMOGRAM
     Dosage: 100 ML, SINGLE AT 3.7 ML/SEC
     Route: 042
     Dates: start: 20130927, end: 20130927

REACTIONS (10)
  - Loss of consciousness [Recovered/Resolved]
  - Laryngeal oedema [Recovering/Resolving]
  - Blood pressure decreased [Recovering/Resolving]
  - Dyspnoea [Recovering/Resolving]
  - Face oedema [Recovering/Resolving]
  - Dysphonia [Recovering/Resolving]
  - Flushing [Recovering/Resolving]
  - Syncope [Recovered/Resolved]
  - Pruritus [Recovering/Resolving]
  - Sneezing [Recovering/Resolving]
